FAERS Safety Report 18968934 (Version 1)
Quarter: 2021Q1

REPORT INFORMATION
  Report Type: Spontaneous
  Country: US (occurrence: US)
  Receive Date: 20210304
  Receipt Date: 20210304
  Transmission Date: 20210420
  Serious: Yes (Hospitalization)
  Sender: FDA-Public Use
  Company Number: None

PATIENT
  Age: 69 Year
  Sex: Male
  Weight: 85.05 kg

DRUGS (11)
  1. ATENOLOL?CHLORTHALIDONE [Concomitant]
     Active Substance: ATENOLOL\CHLORTHALIDONE
  2. CAPECITABINE. [Suspect]
     Active Substance: CAPECITABINE
     Indication: LUNG NEOPLASM MALIGNANT
     Route: 048
     Dates: start: 20210108, end: 20210304
  3. ELIQUIS [Concomitant]
     Active Substance: APIXABAN
  4. IPRATROPIUM?ALBUTEROL [Concomitant]
     Active Substance: ALBUTEROL\IPRATROPIUM
  5. TAMSULOSIN HCL [Concomitant]
     Active Substance: TAMSULOSIN HYDROCHLORIDE
  6. AMLODIPINE BESYLATE. [Concomitant]
     Active Substance: AMLODIPINE BESYLATE
  7. ALLOPURINOL. [Concomitant]
     Active Substance: ALLOPURINOL
  8. LEVOTHYROXINE SODIUM. [Concomitant]
     Active Substance: LEVOTHYROXINE SODIUM
  9. SYMBICORT [Concomitant]
     Active Substance: BUDESONIDE\FORMOTEROL FUMARATE DIHYDRATE
  10. ALPRAZOLAM. [Concomitant]
     Active Substance: ALPRAZOLAM
  11. ONDANSETRON HCL [Concomitant]
     Active Substance: ONDANSETRON HYDROCHLORIDE

REACTIONS (1)
  - Myocardial infarction [None]

NARRATIVE: CASE EVENT DATE: 20210304
